FAERS Safety Report 5814707-2 (Version None)
Quarter: 2008Q3

REPORT INFORMATION
  Report Type: 
  Country: None (occurrence: None)
  Receive Date: 20080718
  Receipt Date: 20080513
  Transmission Date: 20090109
  Serious: No
  Sender: FDA-Public Use
  Company Number: US-KINGPHARMUSA00001-K200800569

PATIENT

DRUGS (6)
  1. LEVOXYL [Suspect]
     Dosage: ^150 MG^ QD
     Dates: start: 20050101, end: 20080201
  2. LEVOXYL [Suspect]
     Dosage: ^175 MG^, UNK
     Dates: start: 20080201
  3. MIRAPEX [Concomitant]
     Indication: RESTLESS LEGS SYNDROME
  4. ALLOPURINOL [Concomitant]
  5. VITAMIN A [Concomitant]
     Dosage: 800 IU, QD
  6. IRON [Concomitant]

REACTIONS (2)
  - ANXIETY [None]
  - BLOOD THYROID STIMULATING HORMONE INCREASED [None]
